FAERS Safety Report 5452375-2 (Version None)
Quarter: 2007Q3

REPORT INFORMATION
  Report Type: 
  Country: None (occurrence: None)
  Receive Date: 20070803
  Receipt Date: 20070504
  Transmission Date: 20080115
  Serious: Yes (Other)
  Sender: FDA-Public Use
  Company Number: 36858

PATIENT
  Age: 55 Year
  Sex: Male
  Weight: 95.2554 kg

DRUGS (8)
  1. PROPOFOL [Suspect]
     Indication: ANAESTHESIA
     Dosage: 300MG/OVER 20 MIN/IV
     Route: 042
     Dates: start: 20070423
  2. PROPOFOL [Suspect]
     Indication: COLONOSCOPY
     Dosage: 300MG/OVER 20 MIN/IV
     Route: 042
     Dates: start: 20070423
  3. FENTANYL [Concomitant]
  4. VERSED [Concomitant]
  5. LISINOPRIL [Concomitant]
  6. LEVOTHYROXINE SODIUM [Concomitant]
  7. NORVASC [Concomitant]
  8. CELEBREX [Concomitant]

REACTIONS (2)
  - INFLUENZA LIKE ILLNESS [None]
  - PYREXIA [None]
